FAERS Safety Report 9006495 (Version 1)
Quarter: 2013Q1

REPORT INFORMATION
  Report Type: Spontaneous
  Country: US (occurrence: US)
  Receive Date: 20130110
  Receipt Date: 20130110
  Transmission Date: 20140127
  Serious: Yes (Hospitalization)
  Sender: FDA-Public Use
  Company Number: US-BAYER-2013-001337

PATIENT
  Age: 27 Year
  Sex: Female
  Weight: 58.96 kg

DRUGS (8)
  1. YAZ [Suspect]
  2. YASMIN [Suspect]
  3. OCELLA [Suspect]
     Dosage: UNK
  4. ASACOL [Concomitant]
     Dosage: 6 PILLS DAILY
  5. STEROID ENEMA [Concomitant]
  6. CORTAID [HYDROCORTISONE] [Concomitant]
  7. PROVA [Concomitant]
     Indication: MIGRAINE
  8. KEPPRA [Concomitant]

REACTIONS (1)
  - Intracranial venous sinus thrombosis [None]
